FAERS Safety Report 14056383 (Version 1)
Quarter: 2017Q4

REPORT INFORMATION
  Report Type: Spontaneous
  Country: US (occurrence: US)
  Receive Date: 20171006
  Receipt Date: 20171006
  Transmission Date: 20180321
  Serious: Yes (Hospitalization)
  Sender: FDA-Public Use
  Company Number: US-ZYDUS-016856

PATIENT
  Age: 49 Year
  Sex: Female

DRUGS (3)
  1. PEGINTERFERON ALFA-2A. [Suspect]
     Active Substance: PEGINTERFERON ALFA-2A
     Indication: HEPATITIS C VIRUS TEST
     Route: 065
     Dates: start: 20110822
  2. TELAPREVIR [Suspect]
     Active Substance: TELAPREVIR
     Indication: HEPATITIS C VIRUS TEST
     Route: 065
     Dates: start: 20170822
  3. RIBAVIRIN. [Suspect]
     Active Substance: RIBAVIRIN
     Indication: HEPATITIS C VIRUS TEST
     Dates: start: 20110822

REACTIONS (15)
  - Pneumonia [Unknown]
  - Blister [Unknown]
  - Nausea [Unknown]
  - Fatigue [Unknown]
  - Vomiting [Unknown]
  - Dyspnoea [Unknown]
  - Asthenia [Unknown]
  - Disorientation [Unknown]
  - Anaemia [Unknown]
  - Confusional state [Unknown]
  - Rash pruritic [Unknown]
  - Depression [Unknown]
  - Dehydration [Unknown]
  - Decreased appetite [Unknown]
  - Oral pain [Unknown]
